FAERS Safety Report 20982911 (Version 1)
Quarter: 2022Q2

REPORT INFORMATION
  Report Type: Spontaneous
  Country: FR (occurrence: FR)
  Receive Date: 20220620
  Receipt Date: 20220620
  Transmission Date: 20220720
  Serious: Yes (Other)
  Sender: FDA-Public Use
  Company Number: FR-BAYER-2022P005062

PATIENT
  Age: 83 Year
  Sex: Male

DRUGS (1)
  1. XARELTO [Suspect]
     Active Substance: RIVAROXABAN
     Indication: Arrhythmia supraventricular
     Dosage: 20 MG
     Route: 048
     Dates: start: 2019

REACTIONS (3)
  - Haematuria [Unknown]
  - Urinary bladder haemorrhage [Unknown]
  - Urinary retention [Unknown]
